FAERS Safety Report 7356172-2 (Version None)
Quarter: 2011Q1

REPORT INFORMATION
  Report Type: 
  Country: None (occurrence: None)
  Receive Date: 20110316
  Receipt Date: 20110303
  Transmission Date: 20110831
  Serious: Yes (Death)
  Sender: FDA-Public Use
  Company Number: FR-PFIZER INC-FR-WYE-H14010610

PATIENT
  Age: 77 Year
  Sex: Male
  Weight: 59.5 kg

DRUGS (25)
  1. LOPERAMIDE [Concomitant]
     Indication: VOMITING
     Dosage: UNK
     Dates: start: 20100125, end: 20100127
  2. SODIUM HYPOCHLORITE [Concomitant]
     Indication: FUNGAL INFECTION
     Dosage: UNK
     Dates: start: 20100122, end: 20100205
  3. ACUPAN [Concomitant]
     Indication: ABDOMINAL PAIN LOWER
     Dosage: UNK
     Dates: start: 20100226
  4. KAYEXALATE [Concomitant]
     Indication: HYPERKALAEMIA
     Dosage: UNK
  5. HUMALOG [Concomitant]
     Indication: DIABETES MELLITUS
     Dosage: 4 UNITS AT EACH MEAL
     Dates: start: 20100227
  6. SIMVASTATIN [Concomitant]
     Indication: HYPERCHOLESTEROLAEMIA
     Dosage: UNK
     Dates: start: 20040101
  7. DOMPERIDONE [Concomitant]
     Indication: NAUSEA
     Dosage: UNK
  8. LANTUS [Concomitant]
     Indication: DIABETES MELLITUS
     Dosage: 16 UNITS ON THE EVENING
     Dates: start: 20100227
  9. LISINOPRIL [Concomitant]
     Indication: HYPERTENSION
     Dosage: UNK
     Dates: start: 20020101
  10. LISINOPRIL [Concomitant]
     Dosage: UNK
     Dates: start: 20040101
  11. ACETYLSALICYLATE LYSINE [Concomitant]
     Indication: MYOCARDIAL INFARCTION
     Dosage: UNK
     Dates: start: 20020101
  12. PARACETAMOL [Concomitant]
     Indication: PAIN
     Dosage: UNK
     Dates: start: 20091201
  13. TEMSIROLIMUS [Suspect]
     Indication: RENAL CELL CARCINOMA
     Dosage: 25 MG, WEEKLY
     Route: 042
     Dates: start: 20091218, end: 20100305
  14. BEVACIZUMAB [Suspect]
     Indication: RENAL CELL CARCINOMA
     Dosage: UNKNOWN DOSE EVERY OTHER WEEK
     Route: 065
     Dates: start: 20091218, end: 20100305
  15. ELISOR [Concomitant]
     Indication: HYPERCHOLESTEROLAEMIA
     Dosage: UNK
     Dates: start: 20020101
  16. CLOPIDOGREL [Concomitant]
     Indication: MYOCARDIAL INFARCTION
     Dosage: UNK
     Dates: start: 20020101
  17. AMOROLFINE [Concomitant]
     Indication: PARONYCHIA
     Dosage: UNK
     Dates: start: 20100205
  18. FUSIDIC ACID [Concomitant]
     Indication: IMPETIGO
     Dosage: UNK
     Dates: start: 20100122, end: 20100205
  19. ESOMEPRAZOLE [Concomitant]
     Indication: OESOPHAGITIS
     Dosage: UNK
  20. MOXYDAR [Concomitant]
     Indication: GASTROINTESTINAL DISORDER
     Dosage: UNK
  21. DOMPERIDONE [Concomitant]
     Indication: VOMITING
     Dosage: UNK
     Dates: start: 20100205, end: 20100212
  22. ATENOLOL [Concomitant]
     Indication: HYPERTENSION
     Dosage: UNK
     Dates: start: 20020101
  23. OMEPRAZOLE [Concomitant]
     Indication: OESOPHAGITIS
     Dosage: UNK
     Dates: start: 20020101
  24. PHLOROGLUCINOL [Concomitant]
     Indication: GASTROINTESTINAL DISORDER
     Dosage: UNK
     Dates: start: 20091201
  25. ALUMINUM HYDROXIDE AND MAGNESIUM TRISILICATE [Concomitant]
     Indication: DIARRHOEA
     Dosage: UNK
     Dates: start: 20100125, end: 20100127

REACTIONS (1)
  - SUDDEN DEATH [None]
